FAERS Safety Report 10446998 (Version 6)
Quarter: 2015Q3

REPORT INFORMATION
  Report Type: Report from Study
  Country: AU (occurrence: AU)
  Receive Date: 20140911
  Receipt Date: 20150811
  Transmission Date: 20151125
  Serious: Yes (Hospitalization, Other)
  Sender: FDA-Public Use
  Company Number: PHHY2014AU108566

PATIENT
  Sex: Male
  Weight: 112.5 kg

DRUGS (2)
  1. CLOZARIL [Suspect]
     Active Substance: CLOZAPINE
     Indication: SCHIZOPHRENIA
     Dosage: 400 OT, UNK
     Route: 048
     Dates: start: 20110324
  2. CLOZARIL [Suspect]
     Active Substance: CLOZAPINE
     Dosage: 250 OT, UNK
     Route: 048
     Dates: end: 20150512

REACTIONS (2)
  - Mental disorder [Recovered/Resolved]
  - Psychotic disorder [Recovered/Resolved]
